FAERS Safety Report 5076230-5 (Version None)
Quarter: 2006Q3

REPORT INFORMATION
  Report Type: 
  Country: None (occurrence: None)
  Receive Date: 20060804
  Receipt Date: 20060724
  Transmission Date: 20061208
  Serious: Yes (Death, Hospitalization)
  Sender: FDA-Public Use
  Company Number: 2006062778

PATIENT
  Age: 51 Year
  Sex: Male
  Weight: 56 kg

DRUGS (4)
  1. SUTENT [Suspect]
     Indication: METASTATIC RENAL CELL CARCINOMA
     Dosage: 50 MG (50 MG, CYCLIC INTERVAL:  EVERYDAY), ORAL
     Route: 048
     Dates: start: 20060424, end: 20060509
  2. CARBAMAZEPINE [Concomitant]
  3. LAMOTRIGINE [Concomitant]
  4. IMIDAPRIL HYDROCHLORIDE (IMIDAPRIL HYDROCHLORIDE) [Concomitant]

REACTIONS (10)
  - ABDOMINAL DISTENSION [None]
  - ABDOMINAL PAIN [None]
  - ASTHENIA [None]
  - BACTERIAL SEPSIS [None]
  - DISEASE PROGRESSION [None]
  - ESCHERICHIA INFECTION [None]
  - ILEUS [None]
  - SEPSIS [None]
  - SOMNOLENCE [None]
  - URINARY TRACT INFECTION [None]
